FAERS Safety Report 8041679-5 (Version None)
Quarter: 2012Q1

REPORT INFORMATION
  Report Type: 
  Country: None (occurrence: None)
  Receive Date: 20120112
  Receipt Date: 20120103
  Transmission Date: 20120608
  Serious: Yes (Hospitalization, Other)
  Sender: FDA-Public Use
  Company Number: FR-ELI_LILLY_AND_COMPANY-FR201201000347

PATIENT
  Sex: Male

DRUGS (4)
  1. KETOCONAZOLE [Concomitant]
  2. DEXERYL                            /00557601/ [Concomitant]
  3. OMEPRAZOLE [Concomitant]
  4. ZYPREXA [Suspect]
     Dosage: 5 MG, QD
     Route: 048
     Dates: start: 20000101, end: 20111007

REACTIONS (8)
  - SYNCOPE [None]
  - WHITE BLOOD CELL COUNT INCREASED [None]
  - FALL [None]
  - HYPOTENSION [None]
  - RHABDOMYOLYSIS [None]
  - ASPARTATE AMINOTRANSFERASE INCREASED [None]
  - ALANINE AMINOTRANSFERASE INCREASED [None]
  - RENAL FAILURE ACUTE [None]
